FAERS Safety Report 9580691 (Version 2)
Quarter: 2014Q3

REPORT INFORMATION
  Report Type: Spontaneous
  Country: US (occurrence: None)
  Receive Date: 20130916
  Receipt Date: 20140915
  Transmission Date: 20150326
  Serious: Yes (Other)
  Sender: FDA-Public Use
  Company Number: JPI-P-033836

PATIENT
  Age: 25 Year
  Sex: Female
  Weight: 57.3 kg

DRUGS (7)
  1. XYREM [Suspect]
     Active Substance: SODIUM OXYBATE
     Indication: NARCOLEPSY
     Route: 048
     Dates: start: 20130503
  2. CITALOPRAM HYDROBROMIDE. [Suspect]
     Active Substance: CITALOPRAM HYDROBROMIDE
     Indication: DEPRESSION
     Route: 048
     Dates: start: 201305, end: 201306
  3. XANAX [Concomitant]
     Active Substance: ALPRAZOLAM
  4. ADDERALL [Concomitant]
     Active Substance: AMPHETAMINE ASPARTATE\AMPHETAMINE SULFATE\DEXTROAMPHETAMINE SACCHARATE\DEXTROAMPHETAMINE SULFATE
  5. XYREM [Suspect]
     Active Substance: SODIUM OXYBATE
     Indication: CATAPLEXY
     Route: 048
     Dates: start: 20130503
  6. VALACYCLOVIR HYDROCHLORIDE. [Concomitant]
     Active Substance: VALACYCLOVIR HYDROCHLORIDE
  7. BUSPAR (BUSPIRONE HYDROCHLORIDE) [Concomitant]

REACTIONS (13)
  - Protein urine present [None]
  - Drug hypersensitivity [None]
  - Decreased appetite [None]
  - Asthenia [None]
  - Retching [None]
  - Gingival recession [None]
  - Arthralgia [None]
  - Incorrect dose administered [None]
  - Poor quality sleep [None]
  - Weight decreased [None]
  - Nausea [None]
  - Condition aggravated [None]
  - Gait disturbance [None]

NARRATIVE: CASE EVENT DATE: 2013
